FAERS Safety Report 5809736-9 (Version None)
Quarter: 2008Q3

REPORT INFORMATION
  Report Type: 
  Country: None (occurrence: None)
  Receive Date: 20080714
  Receipt Date: 20080714
  Transmission Date: 20090109
  Serious: Yes (Other)
  Sender: FDA-Public Use
  Company Number: None

PATIENT
  Age: 57 Year
  Sex: Female
  Weight: 69.8539 kg

DRUGS (1)
  1. LYRICA [Suspect]
     Dosage: 1 CAPSULE TWICE DAILY
     Dates: start: 20070805

REACTIONS (3)
  - ARTHROPATHY [None]
  - WEIGHT DECREASED [None]
  - WEIGHT INCREASED [None]
